FAERS Safety Report 15265903 (Version 1)
Quarter: 2018Q3

REPORT INFORMATION
  Report Type: Spontaneous
  Country: BR (occurrence: BR)
  Receive Date: 20180810
  Receipt Date: 20180810
  Transmission Date: 20181010
  Serious: Yes (Death, Other)
  Sender: FDA-Public Use
  Company Number: BR-PFIZER INC-2018315318

PATIENT
  Age: 12 Year
  Sex: Female

DRUGS (1)
  1. ARACYTIN [Suspect]
     Active Substance: CYTARABINE
     Indication: ACUTE LYMPHOCYTIC LEUKAEMIA
     Dosage: UNK
     Route: 013

REACTIONS (9)
  - Seizure [Unknown]
  - Apallic syndrome [Fatal]
  - Cardio-respiratory arrest [Unknown]
  - Chest pain [Unknown]
  - Incorrect route of drug administration [Unknown]
  - Hypoaesthesia [Unknown]
  - Feeling abnormal [Unknown]
  - Discomfort [Unknown]
  - Nervous system injury [Fatal]
